FAERS Safety Report 8234216-3 (Version None)
Quarter: 2012Q1

REPORT INFORMATION
  Report Type: 
  Country: None (occurrence: None)
  Receive Date: 20120326
  Receipt Date: 20120323
  Transmission Date: 20120608
  Serious: Yes (Life-Threatening)
  Sender: FDA-Public Use
  Company Number: AU-PFIZER INC-2012076305

PATIENT
  Age: 59 Year
  Sex: Male

DRUGS (4)
  1. ST. JOHN'S WORT [Concomitant]
     Dosage: UNK
  2. ATACAND [Concomitant]
     Dosage: UNK
  3. MAXOLON [Concomitant]
     Dosage: UNK
  4. VARENICLINE TARTRATE [Suspect]
     Indication: SMOKING CESSATION THERAPY
     Dosage: UNK
     Dates: start: 20120101, end: 20120304

REACTIONS (7)
  - NERVOUSNESS [None]
  - ABNORMAL DREAMS [None]
  - FEELING OF BODY TEMPERATURE CHANGE [None]
  - INSOMNIA [None]
  - FATIGUE [None]
  - DECREASED APPETITE [None]
  - WITHDRAWAL SYNDROME [None]
